FAERS Safety Report 8115747-3 (Version None)
Quarter: 2012Q1

REPORT INFORMATION
  Report Type: 
  Country: None (occurrence: None)
  Receive Date: 20120206
  Receipt Date: 20120127
  Transmission Date: 20120608
  Serious: Yes (Hospitalization, Other)
  Sender: FDA-Public Use
  Company Number: MX-ELI_LILLY_AND_COMPANY-MX201111001831

PATIENT
  Age: 47 Year
  Sex: Male

DRUGS (4)
  1. HUMALOG MIX 75/25 [Suspect]
  2. HUMALOG [Suspect]
  3. HUMALOG MIX 75/25 [Suspect]
  4. LANTUS [Concomitant]
     Dosage: 50 IU, UNK

REACTIONS (1)
  - STEVENS-JOHNSON SYNDROME [None]
